FAERS Safety Report 24234450 (Version 1)
Quarter: 2024Q3

REPORT INFORMATION
  Report Type: Spontaneous
  Country: US (occurrence: US)
  Receive Date: 20240821
  Receipt Date: 20240821
  Transmission Date: 20241017
  Serious: No
  Sender: JOHNSON AND JOHNSON
  Company Number: US-JNJFOC-20240854708

PATIENT
  Age: 73 Year
  Sex: Male

DRUGS (9)
  1. ERLEADA [Suspect]
     Active Substance: APALUTAMIDE
     Indication: Prostate cancer
     Route: 048
  2. ATORVASTATIN [Concomitant]
     Active Substance: ATORVASTATIN
  3. DILTIAZEM [Concomitant]
     Active Substance: DILTIAZEM
  4. LOSARTAN [Concomitant]
     Active Substance: LOSARTAN\LOSARTAN POTASSIUM
  5. HYDRALAZINE [Concomitant]
     Active Substance: HYDRALAZINE HYDROCHLORIDE
  6. DILTIAZEM [Concomitant]
     Active Substance: DILTIAZEM
  7. VALSARTAN [Concomitant]
     Active Substance: VALSARTAN
  8. SPIRONOLACTONE [Concomitant]
     Active Substance: SPIRONOLACTONE
  9. GABAPENTIN [Concomitant]
     Active Substance: GABAPENTIN

REACTIONS (2)
  - Diarrhoea [Unknown]
  - Product dose omission issue [Unknown]
